FAERS Safety Report 8838265 (Version 3)
Quarter: 2015Q1

REPORT INFORMATION
  Report Type: Report from Study
  Country: US (occurrence: US)
  Receive Date: 20121012
  Receipt Date: 20150205
  Transmission Date: 20150721
  Serious: Yes (Death, Hospitalization)
  Sender: FDA-Public Use
  Company Number: US-ROCHE-1118550

PATIENT
  Age: 68 Year
  Sex: Female

DRUGS (24)
  1. NUTROPIN [Suspect]
     Active Substance: SOMATROPIN
     Indication: EMPTY SELLA SYNDROME
  2. SYNTHROID [Concomitant]
     Active Substance: LEVOTHYROXINE SODIUM
     Route: 065
  3. HUMALOG [Concomitant]
     Active Substance: INSULIN LISPRO
     Dosage: 100U/ML SOLUTION
     Route: 065
  4. DIOVAN [Concomitant]
     Active Substance: VALSARTAN
     Route: 065
  5. SINGULAIR [Concomitant]
     Active Substance: MONTELUKAST SODIUM
     Route: 065
  6. GLUCOPHAGE [Concomitant]
     Active Substance: METFORMIN HYDROCHLORIDE
     Dosage: WITH MEALS
     Route: 065
  7. DDAVP [Concomitant]
     Active Substance: DESMOPRESSIN ACETATE
  8. FELDENE [Concomitant]
     Active Substance: PIROXICAM
     Route: 065
  9. DESYREL [Concomitant]
     Active Substance: TRAZODONE HYDROCHLORIDE
     Route: 065
  10. CYTOMEL [Concomitant]
     Active Substance: LIOTHYRONINE SODIUM
     Route: 065
  11. XANAX [Concomitant]
     Active Substance: ALPRAZOLAM
     Route: 065
  12. NUTROPIN [Suspect]
     Active Substance: SOMATROPIN
     Indication: DWARFISM
     Route: 065
  13. OGEN [Concomitant]
     Active Substance: ESTROPIPATE
     Route: 065
  14. OGEN [Concomitant]
     Active Substance: ESTROPIPATE
     Route: 065
  15. NASACORT [Concomitant]
     Active Substance: TRIAMCINOLONE ACETONIDE
     Route: 065
  16. DIGOXIN. [Concomitant]
     Active Substance: DIGOXIN
     Route: 065
  17. GLARGINE [Concomitant]
     Dosage: 20 UNITS
     Route: 065
  18. NUTROPIN [Suspect]
     Active Substance: SOMATROPIN
     Indication: GROWTH HORMONE DEFICIENCY
  19. ALBUTEROL. [Concomitant]
     Active Substance: ALBUTEROL
     Route: 065
  20. DIURIL (UNITED STATES) [Concomitant]
     Dosage: 1-2 DAYS
     Route: 065
  21. COUMADIN [Concomitant]
     Active Substance: WARFARIN SODIUM
     Route: 065
  22. DITROPAN XL [Concomitant]
     Active Substance: OXYBUTYNIN CHLORIDE
     Dosage: AS NEEDED
     Route: 065
  23. LANTUS [Concomitant]
     Active Substance: INSULIN GLARGINE
     Dosage: 100U/ML SOLUTION
     Route: 065
  24. CARDIZEM [Concomitant]
     Active Substance: DILTIAZEM HYDROCHLORIDE
     Route: 065

REACTIONS (3)
  - Accident [Unknown]
  - Death [Fatal]
  - Joint stiffness [Unknown]

NARRATIVE: CASE EVENT DATE: 20080321
